FAERS Safety Report 9389005 (Version 1)
Quarter: 2013Q3

REPORT INFORMATION
  Report Type: Spontaneous
  Country: CA (occurrence: CA)
  Receive Date: 20130708
  Receipt Date: 20130708
  Transmission Date: 20140515
  Serious: Yes (Other)
  Sender: FDA-Public Use
  Company Number: CA-PFIZER INC-2013196766

PATIENT
  Sex: Female
  Weight: 90.9 kg

DRUGS (19)
  1. CELEBREX [Suspect]
     Indication: ANALGESIC THERAPY
     Dosage: UNK
  2. RITUXAN [Suspect]
     Indication: RHEUMATOID ARTHRITIS
     Dosage: 1000 MG, DAY 1, DAY 15
     Route: 042
     Dates: start: 20100413, end: 20110125
  3. DIPHENHYDRAMINE [Concomitant]
     Indication: PREMEDICATION
     Dosage: 50 MG
     Route: 048
     Dates: start: 20100413, end: 20110125
  4. ACETAMINOPHEN [Concomitant]
     Indication: PREMEDICATION
     Dosage: 1000 MG
     Route: 048
     Dates: start: 20100413, end: 20110125
  5. METHYLPREDNISOLONE [Concomitant]
     Indication: PREMEDICATION
     Dosage: 100 MG
     Route: 042
     Dates: start: 20100413, end: 20110125
  6. ACTONEL [Concomitant]
     Dosage: UNK
  7. AMITRIPTYLINE [Concomitant]
     Dosage: UNK
  8. DICLOFENAC [Concomitant]
     Dosage: UNK
  9. IRON [Concomitant]
     Dosage: UNK
  10. HYDROQUININE [Concomitant]
     Dosage: UNK
  11. PANTOLOC ^BYK MADAUS^ [Concomitant]
     Dosage: UNK
  12. PREDNISONE [Concomitant]
     Dosage: UNK
  13. CALCIUM [Concomitant]
     Dosage: UNK
  14. MIRTAZAPINE [Concomitant]
     Dosage: UNK
  15. FOLIC ACID [Concomitant]
     Dosage: UNK
  16. VITAMIN D [Concomitant]
     Dosage: UNK
  17. LORAZEPAM [Concomitant]
     Dosage: UNK
  18. NITRAZEPAM [Concomitant]
     Dosage: UNK
  19. METHOTREXATE [Concomitant]
     Dosage: UNK

REACTIONS (8)
  - Intervertebral disc degeneration [Not Recovered/Not Resolved]
  - Walking aid user [Not Recovered/Not Resolved]
  - Back pain [Not Recovered/Not Resolved]
  - Nausea [Unknown]
  - Vomiting [Unknown]
  - Weight decreased [Unknown]
  - Hypoaesthesia [Not Recovered/Not Resolved]
  - Drug ineffective [Unknown]
